FAERS Safety Report 11909835 (Version 1)
Quarter: 2016Q1

REPORT INFORMATION
  Report Type: Spontaneous
  Country: US (occurrence: US)
  Receive Date: 20160112
  Receipt Date: 20160112
  Transmission Date: 20160526
  Serious: No
  Sender: FDA-Public Use
  Company Number: US-EMD SERONO-8062379

PATIENT
  Age: 44 Year
  Sex: Male

DRUGS (3)
  1. AMPYRA [Concomitant]
     Active Substance: DALFAMPRIDINE
     Indication: PRODUCT USED FOR UNKNOWN INDICATION
  2. REBIF [Suspect]
     Active Substance: INTERFERON BETA-1A
     Indication: MULTIPLE SCLEROSIS
     Route: 058
  3. PREDNISONE. [Concomitant]
     Active Substance: PREDNISONE
     Indication: PRODUCT USED FOR UNKNOWN INDICATION

REACTIONS (9)
  - Gait disturbance [Not Recovered/Not Resolved]
  - Stress [Unknown]
  - Influenza like illness [Unknown]
  - Injection site pain [Recovered/Resolved]
  - Gait disturbance [Unknown]
  - Asthenia [Unknown]
  - Fall [Unknown]
  - Pain [Unknown]
  - Dysstasia [Unknown]
